FAERS Safety Report 7776876-7 (Version None)
Quarter: 2011Q3

REPORT INFORMATION
  Report Type: 
  Country: None (occurrence: None)
  Receive Date: 20110926
  Receipt Date: 20110912
  Transmission Date: 20111222
  Serious: Yes (Death)
  Sender: FDA-Public Use
  Company Number: ES-MYLANLABS-2011S1019435

PATIENT
  Age: 78 Year
  Sex: Female

DRUGS (10)
  1. SULPIRIDE [Concomitant]
     Indication: RESTLESS LEGS SYNDROME
     Route: 065
  2. OMEPRAZOLE [Suspect]
     Indication: SKIN LESION
     Dosage: 20 MG/DAY
     Route: 065
  3. CETIRIZINE HCL [Concomitant]
     Indication: SKIN LESION
     Route: 065
  4. CARBAMAZEPINE [Interacting]
     Indication: TREMOR
     Dosage: 100 MG/DAY
     Route: 065
  5. CILOSTAZOL [Interacting]
     Dosage: 100 MG/DAY
     Route: 065
  6. METHYLPREDNISOLONE [Concomitant]
     Indication: SKIN LESION
     Dosage: 80 MG/DAY
     Route: 065
  7. SULPIRIDE [Concomitant]
     Indication: TREMOR
     Route: 065
  8. DEFLAZACORT [Concomitant]
     Indication: SKIN LESION
     Dosage: 30 MG/DAY
     Route: 065
  9. CARBAMAZEPINE [Interacting]
     Indication: RESTLESS LEGS SYNDROME
     Dosage: 100 MG/DAY
     Route: 065
  10. HYDROXYZINE [Concomitant]
     Indication: SKIN LESION
     Route: 065

REACTIONS (4)
  - TOXIC EPIDERMAL NECROLYSIS [None]
  - DRUG INTERACTION [None]
  - SEPTIC SHOCK [None]
  - STEVENS-JOHNSON SYNDROME [None]
